FAERS Safety Report 24549414 (Version 1)
Quarter: 2024Q4

REPORT INFORMATION
  Report Type: Spontaneous
  Country: US (occurrence: US)
  Receive Date: 20241025
  Receipt Date: 20241025
  Transmission Date: 20250115
  Serious: No
  Sender: TEVA
  Company Number: US-TEVA-VS-3255020

PATIENT

DRUGS (5)
  1. UZEDY [Suspect]
     Active Substance: RISPERIDONE
     Indication: Product used for unknown indication
     Dosage: 2/24
     Route: 065
  2. UZEDY [Suspect]
     Active Substance: RISPERIDONE
     Dosage: MARCH
     Route: 065
  3. UZEDY [Suspect]
     Active Substance: RISPERIDONE
     Dosage: APRIL
     Route: 065
  4. UZEDY [Suspect]
     Active Substance: RISPERIDONE
     Dosage: MAY
     Route: 065
  5. UZEDY [Suspect]
     Active Substance: RISPERIDONE
     Dosage: Q2 IN JULY
     Route: 065

REACTIONS (2)
  - Dizziness [Unknown]
  - Asthenia [Unknown]
